FAERS Safety Report 11073608 (Version 2)
Quarter: 2015Q2

REPORT INFORMATION
  Report Type: Report from Study
  Country: US (occurrence: US)
  Receive Date: 20150428
  Receipt Date: 20150513
  Transmission Date: 20150821
  Serious: Yes (Death, Hospitalization, Congenital Anomaly)
  Sender: FDA-Public Use
  Company Number: US-ABBVIE-13P-163-1045648-00

PATIENT
  Sex: Male

DRUGS (5)
  1. LEVOTHROID [Suspect]
     Active Substance: LEVOTHYROXINE SODIUM
     Indication: MATERNAL EXPOSURE TIMING UNSPECIFIED
     Route: 064
  2. REYATAZ [Suspect]
     Active Substance: ATAZANAVIR SULFATE
     Indication: MATERNAL EXPOSURE TIMING UNSPECIFIED
     Route: 064
  3. RETROVIR [Suspect]
     Active Substance: ZIDOVUDINE
     Indication: MATERNAL EXPOSURE TIMING UNSPECIFIED
     Route: 064
  4. NORVIR [Suspect]
     Active Substance: RITONAVIR
     Indication: MATERNAL EXPOSURE TIMING UNSPECIFIED
     Route: 064
  5. TRUVADA [Suspect]
     Active Substance: EMTRICITABINE\TENOFOVIR DISOPROXIL FUMARATE
     Indication: MATERNAL EXPOSURE TIMING UNSPECIFIED
     Route: 064

REACTIONS (16)
  - Congenital choroid plexus cyst [Fatal]
  - Aortic valve incompetence [Fatal]
  - Cleft lip [Unknown]
  - Cleft palate [Unknown]
  - Atrial septal defect [Fatal]
  - Patent ductus arteriosus [Fatal]
  - Foetal exposure during pregnancy [Unknown]
  - Limb malformation [Unknown]
  - Congenital aortic anomaly [Fatal]
  - Congenital heart valve disorder [Fatal]
  - Anal atresia [Fatal]
  - Ear malformation [Unknown]
  - Syndactyly [Unknown]
  - Anomalous pulmonary venous connection [Fatal]
  - Trisomy 18 [Fatal]
  - Ventricular septal defect [Fatal]
